FAERS Safety Report 6910487-8 (Version None)
Quarter: 2010Q3

REPORT INFORMATION
  Report Type: 
  Country: None (occurrence: None)
  Receive Date: 20100806
  Receipt Date: 20100723
  Transmission Date: 20110219
  Serious: Yes (Other)
  Sender: FDA-Public Use
  Company Number: PHHY2010US48605

PATIENT
  Sex: Female

DRUGS (4)
  1. ZOMETA [Suspect]
     Dosage: UNK
     Dates: start: 20030101, end: 20100215
  2. VITAMIN TAB [Concomitant]
  3. HERBS [Concomitant]
  4. THYROID MEDICATION [Concomitant]

REACTIONS (11)
  - ABASIA [None]
  - EXOSTOSIS [None]
  - FALL [None]
  - FEMUR FRACTURE [None]
  - JOINT SPRAIN [None]
  - MULTIPLE MYELOMA [None]
  - OEDEMA PERIPHERAL [None]
  - PAIN IN EXTREMITY [None]
  - WALKING AID USER [None]
  - WEIGHT BEARING DIFFICULTY [None]
  - WHEELCHAIR USER [None]
